FAERS Safety Report 8443047-0 (Version None)
Quarter: 2012Q2

REPORT INFORMATION
  Report Type: 
  Country: None (occurrence: None)
  Receive Date: 20120615
  Receipt Date: 20120614
  Transmission Date: 20120825
  Serious: Yes (Life-Threatening, Hospitalization)
  Sender: FDA-Public Use
  Company Number: PHHY2012GB036200

PATIENT
  Age: 42 Year
  Sex: Female

DRUGS (12)
  1. METHOTREXATE [Suspect]
     Dosage: 25 MG, QW
     Route: 048
  2. VENLAFAXINE HCL [Suspect]
     Dosage: 75 MG, BID
     Route: 048
  3. HYDROXYCHLOROQUINE SULFATE [Suspect]
     Indication: RHEUMATOID ARTHRITIS
     Dosage: 400 MG, QD
     Route: 048
  4. OMEPRAZOLE [Suspect]
     Dosage: 20 MG, BID
     Route: 048
  5. NYSTATIN [Concomitant]
  6. BENZYDAMINE [Concomitant]
  7. FLUCLOXACILLIN [Concomitant]
  8. MICONAZOLE [Concomitant]
  9. GABAPENTIN [Suspect]
     Dosage: 600 MG, QID
     Route: 048
  10. METRONIDAZOLE [Concomitant]
  11. SCHERIPROCT [Concomitant]
  12. SULFASALAZINE [Suspect]
     Dosage: 500 MG, UNK
     Route: 048

REACTIONS (7)
  - BLOOD DISORDER [None]
  - CONTUSION [None]
  - THROMBOCYTOPENIA [None]
  - FULL BLOOD COUNT ABNORMAL [None]
  - ABDOMINAL PAIN [None]
  - HAEMATEMESIS [None]
  - DIARRHOEA [None]
